FAERS Safety Report 17528050 (Version 1)
Quarter: 2020Q1

REPORT INFORMATION
  Report Type: Report from Study
  Country: RU (occurrence: RU)
  Receive Date: 20200311
  Receipt Date: 20200311
  Transmission Date: 20200409
  Serious: Yes (Other)
  Sender: FDA-Public Use
  Company Number: RU-BRISTOL-MYERS SQUIBB COMPANY-BMS-2020-020040

PATIENT

DRUGS (1)
  1. NIVOLUMAB [Suspect]
     Active Substance: NIVOLUMAB
     Indication: PLASMA CELL MYELOMA
     Dosage: 100 MILLIGRAM, AT THE FIXED DOSE ON DAY  -3 BEFORE AND DAY +17 AFTER AUTOLOGOUS HEMATPOIETIC STEM CE
     Route: 042

REACTIONS (2)
  - Intentional product use issue [Unknown]
  - Immune thrombocytopenic purpura [Unknown]
